FAERS Safety Report 6848404-1 (Version None)
Quarter: 2010Q3

REPORT INFORMATION
  Report Type: 
  Country: None (occurrence: None)
  Receive Date: 20100716
  Receipt Date: 20100708
  Transmission Date: 20110219
  Serious: Yes (Hospitalization, Other)
  Sender: FDA-Public Use
  Company Number: US-BAXTER-2010BH018243

PATIENT
  Sex: Female

DRUGS (1)
  1. SODIUM CHLORIDE 0.9% IN PLASTIC CONTAINER [Suspect]
     Indication: BREAST PROSTHESIS IMPLANTATION
     Route: 050
     Dates: start: 20080228, end: 20080711

REACTIONS (5)
  - ABSCESS DRAINAGE [None]
  - BREAST ABSCESS [None]
  - BREAST CELLULITIS [None]
  - BREAST PROSTHESIS REMOVAL [None]
  - PYREXIA [None]
